FAERS Safety Report 10036173 (Version 1)
Quarter: 2014Q1

REPORT INFORMATION
  Report Type: Spontaneous
  Country: US (occurrence: None)
  Receive Date: 20140306
  Receipt Date: 20140306
  Transmission Date: 20141002
  Serious: Yes (Other)
  Sender: FDA-Public Use
  Company Number: 163-21880-13120441

PATIENT
  Age: 61 Year
  Sex: Female
  Weight: 89.8 kg

DRUGS (9)
  1. REVLIMID (LENALIDOMIDE) (CAPSULES) [Suspect]
     Indication: PLASMA CELL MYELOMA
     Dosage: 25 MG, 21 IN 21 D, PO
     Route: 048
     Dates: start: 201203
  2. DEXAMETHASONE (DEXAMETHASONE) [Concomitant]
  3. COUMADIN (WARFARIN SODIUM) [Concomitant]
  4. DIGOXIN (DIGOXIN) [Concomitant]
  5. DILTIAZEM (DILTIAZEM) [Concomitant]
  6. POTASSIUM (POTASSIUM) [Concomitant]
  7. VITAMIN B12 (CYANOCOBALAMIN) [Concomitant]
  8. VITAMIN B6 (PYRIDOXINE HYDROCHLORIDE) [Concomitant]
  9. VITAMIN D3 (COLECALCIFEROL) [Concomitant]

REACTIONS (1)
  - Blood glucose increased [None]
